FAERS Safety Report 8963373 (Version 1)
Quarter: 2012Q4

REPORT INFORMATION
  Report Type: 
  Country: US (occurrence: US)
  Receive Date: 20121214
  Receipt Date: 20121214
  Transmission Date: 20130627
  Serious: Yes (Other)
  Sender: FDA-Public Use
  Company Number: US-BRISTOL-MYERS SQUIBB COMPANY-17185679

PATIENT
  Sex: Female

DRUGS (2)
  1. ABILIFY [Suspect]
     Indication: DEPRESSION
     Dosage: Dose increased to 5mg
  2. ABILIFY [Suspect]
     Indication: PERSONALITY DISORDER
     Dosage: Dose increased to 5mg

REACTIONS (1)
  - Mania [Unknown]
